FAERS Safety Report 9782198 (Version 1)
Quarter: 2013Q4

REPORT INFORMATION
  Report Type: Spontaneous
  Country: US (occurrence: US)
  Receive Date: 20131226
  Receipt Date: 20131226
  Transmission Date: 20140711
  Serious: No
  Sender: FDA-Public Use
  Company Number: US-009507513-1312USA008022

PATIENT
  Sex: Female

DRUGS (10)
  1. ZETIA [Suspect]
  2. XELJANZ [Concomitant]
     Indication: RHEUMATOID ARTHRITIS
     Dosage: 5 MG, BID
     Route: 048
     Dates: start: 201309, end: 2013
  3. XELJANZ [Concomitant]
     Dosage: 5 MG, QD
     Route: 048
     Dates: start: 2013
  4. EFFEXOR XR [Concomitant]
  5. RESTASIS [Concomitant]
  6. NEURONTIN [Concomitant]
  7. FLEXERIL [Concomitant]
  8. SALSALATE [Concomitant]
  9. IMURAN (AZATHIOPRINE) [Concomitant]
  10. ALBUTEROL SULFATE [Concomitant]

REACTIONS (1)
  - Adverse event [Unknown]
